FAERS Safety Report 8267271-5 (Version None)
Quarter: 2012Q2

REPORT INFORMATION
  Report Type: 
  Country: None (occurrence: None)
  Receive Date: 20120409
  Receipt Date: 20120404
  Transmission Date: 20120825
  Serious: Yes (Other)
  Sender: FDA-Public Use
  Company Number: US-JNJFOC-20120402469

PATIENT
  Age: 54 Year
  Sex: Male
  Weight: 77.11 kg

DRUGS (3)
  1. ASPIRIN [Concomitant]
     Indication: PROPHYLAXIS
     Route: 065
  2. ZYRTEC [Suspect]
     Route: 048
  3. ZYRTEC [Suspect]
     Indication: SEASONAL ALLERGY
     Route: 048
     Dates: end: 20120403

REACTIONS (1)
  - PSORIASIS [None]
